FAERS Safety Report 4682619-6 (Version None)
Quarter: 2005Q2

REPORT INFORMATION
  Report Type: 
  Country: None (occurrence: None)
  Receive Date: 20050606
  Receipt Date: 20050524
  Transmission Date: 20051028
  Serious: Yes (Life-Threatening)
  Sender: FDA-Public Use
  Company Number: PHBS2005CZ07356

PATIENT
  Age: 14 Year
  Sex: Male

DRUGS (3)
  1. IMIPRAMINE [Suspect]
     Indication: DEPRESSION
     Route: 065
  2. IMIPRAMINE [Suspect]
     Dosage: 47 MG/KG OF BODY MASS
     Route: 065
  3. IBUPROFEN [Suspect]
     Dosage: SEVERAL DRAGEES
     Route: 048

REACTIONS (8)
  - BLEEDING TIME PROLONGED [None]
  - CARDIAC FAILURE [None]
  - CARDIOVASCULAR DISORDER [None]
  - NERVOUS SYSTEM DISORDER [None]
  - POISONING [None]
  - RENAL FAILURE [None]
  - RESPIRATORY FAILURE [None]
  - URINARY TRACT DISORDER [None]
